FAERS Safety Report 7913981-6 (Version None)
Quarter: 2011Q4

REPORT INFORMATION
  Report Type: 
  Country: None (occurrence: None)
  Receive Date: 20111110
  Receipt Date: 20111103
  Transmission Date: 20120403
  Serious: Yes (Hospitalization, Other)
  Sender: FDA-Public Use
  Company Number: 2010SP058593

PATIENT
  Age: 32 Year
  Sex: Female
  Weight: 63.5036 kg

DRUGS (3)
  1. NUVARING [Suspect]
     Indication: CONTRACEPTION
     Dosage: 1 DF;QM
     Dates: start: 20070709, end: 20080101
  2. NUVARING [Suspect]
     Indication: MENSTRUATION IRREGULAR
     Dosage: 1 DF;QM
     Dates: start: 20070709, end: 20080101
  3. PROTONIX [Concomitant]

REACTIONS (29)
  - PULMONARY EMBOLISM [None]
  - BRONCHOSPASM [None]
  - VAGINAL DISORDER [None]
  - BRONCHITIS [None]
  - PLEURISY [None]
  - PULMONARY INFARCTION [None]
  - ATELECTASIS [None]
  - DEPRESSION [None]
  - FACTOR V DEFICIENCY [None]
  - HAEMOGLOBIN DECREASED [None]
  - VITAMIN D DEFICIENCY [None]
  - BLOOD CHOLESTEROL INCREASED [None]
  - ABDOMINAL PAIN [None]
  - UPPER RESPIRATORY TRACT INFECTION [None]
  - SKIN PAPILLOMA [None]
  - WEIGHT INCREASED [None]
  - FATIGUE [None]
  - ANXIETY [None]
  - TYMPANIC MEMBRANE PERFORATION [None]
  - LACERATION [None]
  - MUSCULOSKELETAL PAIN [None]
  - LUNG CONSOLIDATION [None]
  - DYSLIPIDAEMIA [None]
  - INSULIN RESISTANCE [None]
  - OEDEMA PERIPHERAL [None]
  - THROMBOPHLEBITIS SUPERFICIAL [None]
  - ROAD TRAFFIC ACCIDENT [None]
  - CERVICAL DYSPLASIA [None]
  - HYPOTHYROIDISM [None]
